FAERS Safety Report 7767061-3 (Version None)
Quarter: 2011Q3

REPORT INFORMATION
  Report Type: 
  Country: None (occurrence: None)
  Receive Date: 20110922
  Receipt Date: 20110504
  Transmission Date: 20111222
  Serious: Yes (Hospitalization)
  Sender: FDA-Public Use
  Company Number: US-ASTRAZENECA-2011SE25853

PATIENT
  Age: 19 Year
  Sex: Male
  Weight: 77.1 kg

DRUGS (6)
  1. SEROQUEL XR [Suspect]
     Route: 048
     Dates: start: 20090101, end: 20110414
  2. LITHIUM CARBONATE [Concomitant]
     Indication: MANIA
  3. RISPERDAL [Concomitant]
     Indication: PSYCHOTIC DISORDER
  4. SEROQUEL XR [Suspect]
     Route: 048
  5. KLONOPIN [Concomitant]
     Indication: ANXIETY
  6. SEROQUEL XR [Suspect]
     Indication: MANIA
     Route: 048
     Dates: start: 20090101

REACTIONS (5)
  - ANXIETY [None]
  - SEDATION [None]
  - INCORRECT DOSE ADMINISTERED [None]
  - DRUG DOSE OMISSION [None]
  - MANIA [None]
